FAERS Safety Report 6188763-9 (Version None)
Quarter: 2009Q2

REPORT INFORMATION
  Report Type: 
  Country: None (occurrence: None)
  Receive Date: 20090511
  Receipt Date: 20090511
  Transmission Date: 20091009
  Serious: Yes (Disabling)
  Sender: FDA-Public Use
  Company Number: None

PATIENT
  Age: 55 Year
  Sex: Female
  Weight: 90.7194 kg

DRUGS (2)
  1. NABUMETONE [Suspect]
     Indication: ARTHRALGIA
     Dosage: 1 2X PO
     Route: 048
     Dates: start: 20080901, end: 20090503
  2. NABUMETONE [Suspect]
     Indication: ARTHRITIS
     Dosage: 1 2X PO
     Route: 048
     Dates: start: 20080901, end: 20090503

REACTIONS (1)
  - NO THERAPEUTIC RESPONSE [None]
